FAERS Safety Report 15409107 (Version 3)
Quarter: 2019Q3

REPORT INFORMATION
  Report Type: Spontaneous
  Country: JP (occurrence: JP)
  Receive Date: 20180920
  Receipt Date: 20190710
  Transmission Date: 20191004
  Serious: Yes (Death, Hospitalization)
  Sender: FDA-Public Use
  Company Number: JP-CELGENEUS-JPN-20180906573

PATIENT
  Age: 76 Year
  Sex: Male
  Weight: 52.5 kg

DRUGS (1)
  1. VIDAZA [Suspect]
     Active Substance: AZACITIDINE
     Indication: MYELODYSPLASTIC SYNDROME
     Dosage: 110 MILLIGRAM
     Route: 058
     Dates: start: 20180827, end: 20180830

REACTIONS (2)
  - Interstitial lung disease [Fatal]
  - Sepsis [Unknown]

NARRATIVE: CASE EVENT DATE: 20180830
